FAERS Safety Report 7973534-0 (Version None)
Quarter: 2011Q4

REPORT INFORMATION
  Report Type: 
  Country: None (occurrence: None)
  Receive Date: 20111202
  Receipt Date: 20111123
  Transmission Date: 20120403
  Serious: Yes (Other)
  Sender: FDA-Public Use
  Company Number: 2011SP050459

PATIENT
  Age: 39 Year
  Sex: Female
  Weight: 52 kg

DRUGS (1)
  1. CERAZETTE (DESOGESTREL /00754001/) [Suspect]
     Indication: CONTRACEPTION
     Dosage: QD; PO
     Route: 048
     Dates: start: 20070101, end: 20111018

REACTIONS (5)
  - WEIGHT INCREASED [None]
  - ABORTION SPONTANEOUS [None]
  - PREGNANCY [None]
  - NAUSEA [None]
  - CHOLELITHIASIS [None]
